FAERS Safety Report 20570775 (Version 4)
Quarter: 2023Q1

REPORT INFORMATION
  Report Type: Spontaneous
  Country: US (occurrence: US)
  Receive Date: 20220309
  Receipt Date: 20230217
  Transmission Date: 20230418
  Serious: Yes (Disabling, Other)
  Sender: FDA-Public Use
  Company Number: US-ORGANON-O2203USA000622

PATIENT
  Sex: Female

DRUGS (5)
  1. SINGULAIR [Suspect]
     Active Substance: MONTELUKAST SODIUM
     Indication: Asthma
     Dosage: 10 MG P.O. DAILY
     Route: 048
     Dates: end: 2020
  2. FLOVENT [Suspect]
     Active Substance: FLUTICASONE PROPIONATE
     Dosage: 220 MCG 2 PUFFS B.I.D.
  3. ALBUTEROL [Suspect]
     Active Substance: ALBUTEROL
     Indication: Asthma
     Dosage: INHALER ON A P.R.N. BASIS
  4. PREDNISONE [Suspect]
     Active Substance: PREDNISONE
     Indication: Asthma
     Dosage: UNK
  5. SEREVENT DISKUS [Suspect]
     Active Substance: SALMETEROL XINAFOATE
     Dosage: 2 PUFFS B.I.D

REACTIONS (24)
  - Neuropsychiatric symptoms [Not Recovered/Not Resolved]
  - Sleep disorder [Recovered/Resolved]
  - Tic [Not Recovered/Not Resolved]
  - Neuropathy peripheral [Unknown]
  - Pneumonia [Unknown]
  - Cervix carcinoma [Unknown]
  - Hysterectomy [Unknown]
  - Depression [Unknown]
  - Drug ineffective [Unknown]
  - Affective disorder [Recovering/Resolving]
  - Migraine [Not Recovered/Not Resolved]
  - Nightmare [Recovering/Resolving]
  - Anxiety [Unknown]
  - Vomiting [Recovered/Resolved]
  - Nausea [Unknown]
  - Abdominal pain [Unknown]
  - Bursitis [Unknown]
  - Gastrooesophageal reflux disease [Unknown]
  - Dyspnoea [Unknown]
  - Hyperglycaemia [Unknown]
  - Attention deficit hyperactivity disorder [Unknown]
  - Fibromyalgia [Unknown]
  - Panic attack [Unknown]
  - Pain in extremity [Unknown]

NARRATIVE: CASE EVENT DATE: 20040101
